FAERS Safety Report 13855298 (Version 1)
Quarter: 2017Q3

REPORT INFORMATION
  Report Type: Spontaneous
  Country: DE (occurrence: DE)
  Receive Date: 20170810
  Receipt Date: 20170810
  Transmission Date: 20171127
  Serious: Yes (Other)
  Sender: FDA-Public Use
  Company Number: DE-IMPAX LABORATORIES, INC-2017-IPXL-02382

PATIENT
  Age: 57 Year
  Sex: Male

DRUGS (1)
  1. CARBIDOPA-LEVODOPA ER [Suspect]
     Active Substance: CARBIDOPA\LEVODOPA
     Indication: PARKINSON^S DISEASE
     Dosage: LCIG + LDD OF 3,108 MG
     Route: 065

REACTIONS (5)
  - Acute motor-sensory axonal neuropathy [Recovered/Resolved]
  - Vitamin B6 decreased [Unknown]
  - Vitamin B12 decreased [Unknown]
  - Hyperhomocysteinaemia [Recovering/Resolving]
  - Blood folate decreased [Unknown]
